FAERS Safety Report 5890926-4 (Version None)
Quarter: 2008Q3

REPORT INFORMATION
  Report Type: 
  Country: None (occurrence: None)
  Receive Date: 20080922
  Receipt Date: 20080912
  Transmission Date: 20090109
  Serious: Yes (Death, Hospitalization)
  Sender: FDA-Public Use
  Company Number: A0730564A

PATIENT
  Age: 59 Year
  Sex: Female
  Weight: 109.1 kg

DRUGS (3)
  1. AVANDIA [Suspect]
     Indication: DRUG USE FOR UNKNOWN INDICATION
     Route: 048
     Dates: start: 20010101, end: 20060201
  2. GLARGINE [Concomitant]
     Dates: start: 20030101
  3. INSULIN [Concomitant]

REACTIONS (15)
  - ANXIETY [None]
  - ARTERIOSCLEROSIS [None]
  - CARDIAC ARREST [None]
  - CARDIAC DISORDER [None]
  - CARDIAC FAILURE CONGESTIVE [None]
  - CONDITION AGGRAVATED [None]
  - DEATH [None]
  - DEPRESSION [None]
  - HYPERTENSION [None]
  - MULTIPLE INJURIES [None]
  - MYOCARDIAL INFARCTION [None]
  - PERIPHERAL VASCULAR DISORDER [None]
  - QUALITY OF LIFE DECREASED [None]
  - TRANSIENT ISCHAEMIC ATTACK [None]
  - VOMITING [None]
